FAERS Safety Report 5712580-4 (Version None)
Quarter: 2008Q2

REPORT INFORMATION
  Report Type: 
  Country: None (occurrence: None)
  Receive Date: 20080422
  Receipt Date: 20080410
  Transmission Date: 20081010
  Serious: Yes (Hospitalization, Other)
  Sender: FDA-Public Use
  Company Number: PHHO2007DK20839

PATIENT
  Age: 56 Year
  Sex: Male

DRUGS (2)
  1. CERTICAN [Suspect]
     Indication: LUNG TRANSPLANT
     Dosage: 0.5 MG, BID
     Dates: start: 20071120, end: 20071228
  2. SANDIMMUNE [Suspect]
     Dosage: 250 MG, UNK
     Route: 042
     Dates: start: 19990405

REACTIONS (5)
  - BLOOD CREATINE INCREASED [None]
  - BLOOD UREA INCREASED [None]
  - DYSPNOEA [None]
  - PULMONARY EMBOLISM [None]
  - PULMONARY HYPERTENSION [None]
